FAERS Safety Report 7112762-3 (Version None)
Quarter: 2010Q4

REPORT INFORMATION
  Report Type: 
  Country: None (occurrence: None)
  Receive Date: 20101119
  Receipt Date: 20091123
  Transmission Date: 20110411
  Serious: No
  Sender: FDA-Public Use
  Company Number: US-TEVA-213737USA

PATIENT
  Sex: Female
  Weight: 86.26 kg

DRUGS (1)
  1. ALBUTEROL SULFATE AUTOHALER [Suspect]
     Route: 055
     Dates: start: 20090620

REACTIONS (2)
  - DRUG ERUPTION [None]
  - INTERSTITIAL GRANULOMATOUS DERMATITIS [None]
